FAERS Safety Report 5254449-8 (Version None)
Quarter: 2007Q1

REPORT INFORMATION
  Report Type: 
  Country: None (occurrence: None)
  Receive Date: 20070302
  Receipt Date: 20070221
  Transmission Date: 20070707
  Serious: Yes (Death, Hospitalization, Other)
  Sender: FDA-Public Use
  Company Number: US-PFIZER INC-2005130011

PATIENT
  Sex: Female
  Weight: 54 kg

DRUGS (26)
  1. BEXTRA [Suspect]
     Indication: BACK PAIN
     Route: 048
     Dates: start: 20041204, end: 20041216
  2. CLONIDINE [Concomitant]
     Dates: start: 20010828, end: 20041213
  3. LOTREL [Concomitant]
     Dates: start: 20040527, end: 20041213
  4. NEURONTIN [Concomitant]
  5. ZANAFLEX [Concomitant]
  6. TOPROL-XL [Concomitant]
  7. LISINOPRIL [Concomitant]
  8. TRAZODONE HCL [Concomitant]
  9. TIZANIDINE HCL [Concomitant]
  10. LEVAQUIN [Concomitant]
  11. LABETALOL HCL [Concomitant]
  12. DEPAKOTE [Concomitant]
  13. CIPROFLOXACIN [Concomitant]
  14. HYDRALAZINE HCL [Concomitant]
  15. TOPAMAX [Concomitant]
  16. MIRTAZAPINE [Concomitant]
  17. PREMARIN [Concomitant]
  18. ZOLOFT [Concomitant]
  19. DITROPAN [Concomitant]
  20. LORCET-HD [Concomitant]
  21. METHADONE HCL [Concomitant]
  22. PERCOCET [Concomitant]
  23. PHENAZOPYRIDINE HCL TAB [Concomitant]
  24. ULTRACET [Concomitant]
  25. MORPHINE [Concomitant]
  26. REGLAN [Concomitant]

REACTIONS (1)
  - MYOCARDIAL INFARCTION [None]
